FAERS Safety Report 9855303 (Version 2)
Quarter: 2014Q2

REPORT INFORMATION
  Report Type: Spontaneous
  Country: JP (occurrence: JP)
  Receive Date: 20140130
  Receipt Date: 20140403
  Transmission Date: 20141212
  Serious: Yes (Hospitalization, Other)
  Sender: FDA-Public Use
  Company Number: JP-JNJFOC-20140114433

PATIENT
  Age: 80 Year
  Sex: Male
  Weight: 19.96 kg

DRUGS (10)
  1. GALANTAMINE HBR [Suspect]
     Indication: DEMENTIA ALZHEIMER^S TYPE
     Route: 048
     Dates: start: 20131223, end: 20140107
  2. GALANTAMINE HBR [Suspect]
     Indication: DEMENTIA ALZHEIMER^S TYPE
     Route: 048
     Dates: start: 20131220, end: 20131222
  3. TEGRETOL [Concomitant]
     Route: 048
  4. TAKEPRON [Concomitant]
     Route: 048
  5. AMLODIPINE  BESILATE [Concomitant]
     Route: 048
  6. AZILSARTAN [Concomitant]
     Route: 048
  7. SLOW-K [Concomitant]
     Route: 048
  8. VILDAGLIPTIN [Concomitant]
     Route: 048
  9. ACTOS [Concomitant]
     Route: 048
  10. AMARYL [Concomitant]
     Route: 048

REACTIONS (4)
  - Insomnia [Recovering/Resolving]
  - Aggression [Recovering/Resolving]
  - Restlessness [Recovering/Resolving]
  - Irritability [Recovering/Resolving]
